FAERS Safety Report 8237450-1 (Version None)
Quarter: 2012Q1

REPORT INFORMATION
  Report Type: 
  Country: None (occurrence: None)
  Receive Date: 20120327
  Receipt Date: 20120313
  Transmission Date: 20120608
  Serious: Yes (Other)
  Sender: FDA-Public Use
  Company Number: PHHY2011AR07045

PATIENT
  Age: 45 Year
  Sex: Male

DRUGS (5)
  1. MELLARIL [Suspect]
     Indication: TUBERCULOSIS
  2. LINEZOLID [Suspect]
     Dosage: 600 MG, QD
  3. MOXIFLOXACIN [Suspect]
  4. ETHIONAMIDE [Suspect]
     Indication: TUBERCULOSIS
  5. LINEZOLID [Suspect]
     Indication: TUBERCULOSIS
     Dosage: 600 MG, BID

REACTIONS (1)
  - POLYNEUROPATHY [None]
